FAERS Safety Report 14861032 (Version 2)
Quarter: 2018Q2

REPORT INFORMATION
  Report Type: Spontaneous
  Country: AU (occurrence: AU)
  Receive Date: 20180508
  Receipt Date: 20180606
  Transmission Date: 20180711
  Serious: Yes (Hospitalization, Other)
  Sender: FDA-Public Use
  Company Number: AU-NAPPMUNDI-GBR-2018-0055362

PATIENT
  Age: 77 Year
  Sex: Female

DRUGS (7)
  1. DIAZEPAM. [Suspect]
     Active Substance: DIAZEPAM
     Indication: PRODUCT USED FOR UNKNOWN INDICATION
     Dosage: 5 MG, NOCTE PRN
     Route: 065
  2. AMITRIPTYLINE [Concomitant]
     Active Substance: AMITRIPTYLINE
     Dosage: 50 MG, NOCTE (AT NIGHT)
  3. OXYCODONE HYDROCHLORIDE. [Suspect]
     Active Substance: OXYCODONE HYDROCHLORIDE
     Indication: PRODUCT USED FOR UNKNOWN INDICATION
     Dosage: ADDITIONAL PRN OXYCODONE
     Route: 065
  4. SERTRALINE [Concomitant]
     Active Substance: SERTRALINE HYDROCHLORIDE
     Dosage: 25 MG, DAILY
  5. OXYCODONE HYDROCHLORIDE. [Suspect]
     Active Substance: OXYCODONE HYDROCHLORIDE
     Dosage: 5 MG, PRN
     Route: 065
  6. TEMAZEPAM. [Suspect]
     Active Substance: TEMAZEPAM
     Indication: PRODUCT USED FOR UNKNOWN INDICATION
     Dosage: 20 MG, NOCTE
     Route: 065
  7. BUPRENORPHINE. [Concomitant]
     Active Substance: BUPRENORPHINE
     Dosage: 20 MCG, Q1H
     Route: 062

REACTIONS (10)
  - Hypersomnia [Unknown]
  - Dysarthria [Unknown]
  - Abnormal behaviour [Unknown]
  - Judgement impaired [Unknown]
  - Anxiety [Unknown]
  - Impaired reasoning [Unknown]
  - Withdrawal syndrome [Unknown]
  - Bruxism [Recovering/Resolving]
  - Fall [Unknown]
  - Drug abuse [Unknown]
